FAERS Safety Report 26097404 (Version 1)
Quarter: 2025Q4

REPORT INFORMATION
  Report Type: Spontaneous
  Country: EU (occurrence: EU)
  Receive Date: 20251127
  Receipt Date: 20251127
  Transmission Date: 20260117
  Serious: Yes (Other)
  Sender: LEO PHARM
  Company Number: EU-LEO Pharma-384457

PATIENT
  Age: 73 Year
  Sex: Female

DRUGS (1)
  1. ADBRY [Suspect]
     Active Substance: TRALOKINUMAB-LDRM
     Indication: Hand dermatitis
     Route: 058

REACTIONS (2)
  - Hypertensive crisis [Unknown]
  - Product use in unapproved indication [Unknown]
